FAERS Safety Report 11358959 (Version 1)
Quarter: 2015Q3

REPORT INFORMATION
  Report Type: Spontaneous
  Country: NZ (occurrence: NZ)
  Receive Date: 20150807
  Receipt Date: 20150807
  Transmission Date: 20151125
  Serious: Yes (Other)
  Sender: FDA-Public Use
  Company Number: NZ-SA-2015SA111010

PATIENT
  Age: 74 Year
  Sex: Male

DRUGS (12)
  1. DABIGATRAN [Concomitant]
     Active Substance: DABIGATRAN
     Dosage: DOSE: 150
     Route: 048
  2. FLUTICASONE [Concomitant]
     Active Substance: FLUTICASONE\FLUTICASONE PROPIONATE
     Dosage: DOSE: 125
     Route: 048
  3. METFORMIN [Concomitant]
     Active Substance: METFORMIN HYDROCHLORIDE
  4. RIFAMPICIN [Suspect]
     Active Substance: RIFAMPIN
     Route: 048
     Dates: start: 20150112, end: 20150119
  5. AMIODARONE [Concomitant]
     Active Substance: AMIODARONE
     Route: 048
  6. IBUPROFEN. [Concomitant]
     Active Substance: IBUPROFEN
     Dosage: DOSE: 200
     Route: 048
  7. PARACETAMOL [Concomitant]
     Active Substance: ACETAMINOPHEN
     Route: 048
  8. FUROSEMIDE. [Concomitant]
     Active Substance: FUROSEMIDE
     Route: 048
  9. SIMVASTATIN. [Concomitant]
     Active Substance: SIMVASTATIN
     Route: 048
  10. FELODIPINE. [Concomitant]
     Active Substance: FELODIPINE
     Route: 048
  11. BENZYLPENICILLIN [Concomitant]
     Active Substance: PENICILLIN G
     Route: 042
  12. CILAZAPRIL [Concomitant]
     Active Substance: CILAZAPRIL ANHYDROUS
     Route: 048

REACTIONS (2)
  - Dyspnoea [Recovered/Resolved]
  - Cardiac failure [Recovering/Resolving]
